FAERS Safety Report 5814744-8 (Version None)
Quarter: 2008Q3

REPORT INFORMATION
  Report Type: 
  Country: None (occurrence: None)
  Receive Date: 20080718
  Receipt Date: 20080709
  Transmission Date: 20090109
  Serious: Yes (Hospitalization, Other)
  Sender: FDA-Public Use
  Company Number: US-ROCHE-575024

PATIENT
  Age: 45 Year
  Sex: Female

DRUGS (9)
  1. PEGASYS [Suspect]
     Indication: HEPATITIS C
     Route: 065
     Dates: start: 20080507
  2. COPEGUS [Suspect]
     Indication: HEPATITIS C
     Route: 065
     Dates: start: 20080507
  3. NEXIUM [Concomitant]
  4. ZOLOFT [Concomitant]
  5. CLONIDINE [Concomitant]
  6. XANAX [Concomitant]
  7. NEUPOGEN [Concomitant]
  8. DOXEPIN HCL [Concomitant]
  9. PROCRIT [Concomitant]

REACTIONS (5)
  - CONVULSION [None]
  - DYSPHEMIA [None]
  - FUNGAL OESOPHAGITIS [None]
  - INSOMNIA [None]
  - ORAL CANDIDIASIS [None]
